FAERS Safety Report 25813551 (Version 1)
Quarter: 2025Q3

REPORT INFORMATION
  Report Type: Report from Study
  Country: BH (occurrence: BH)
  Receive Date: 20250917
  Receipt Date: 20250917
  Transmission Date: 20251021
  Serious: Yes (Other)
  Sender: RANBAXY
  Company Number: BH-SUN PHARMACEUTICAL INDUSTRIES LTD-2025RR-527665

PATIENT
  Age: 65 Year
  Sex: Male

DRUGS (2)
  1. ISOTRETINOIN [Suspect]
     Active Substance: ISOTRETINOIN
     Indication: Skin papilloma
     Dosage: 20 MILLIGRAM, DAILY
     Route: 048
  2. ISOTRETINOIN [Suspect]
     Active Substance: ISOTRETINOIN
     Dosage: 30 MILLIGRAM, DAILY
     Route: 048

REACTIONS (2)
  - Off label use [Recovered/Resolved]
  - Therapeutic product effect incomplete [Recovered/Resolved]
